FAERS Safety Report 5443285-5 (Version None)
Quarter: 2007Q3

REPORT INFORMATION
  Report Type: 
  Country: None (occurrence: None)
  Receive Date: 20070830
  Receipt Date: 20070820
  Transmission Date: 20080115
  Serious: Yes (Hospitalization)
  Sender: FDA-Public Use
  Company Number: 2007-163194-NL

PATIENT
  Age: 43 Year
  Sex: Male

DRUGS (12)
  1. MIRTAZAPINE [Suspect]
     Indication: DEPRESSION
     Dosage: DF
     Dates: end: 20070712
  2. VALPROATE SODIUM [Suspect]
     Indication: EPILEPSY
     Dosage: 1500 MG/500 MG ORAL
     Route: 048
     Dates: end: 20070724
  3. VALPROATE SODIUM [Suspect]
     Indication: EPILEPSY
     Dosage: 1500 MG/500 MG ORAL
     Route: 048
     Dates: start: 20070724, end: 20070728
  4. CYAMEMAZINE [Suspect]
     Indication: MENTAL DISORDER
     Dosage: 300 MG ORAL
     Route: 048
  5. OLANZAPINE [Suspect]
     Indication: MENTAL DISORDER
     Dosage: 10 MG ORAL
     Route: 048
  6. AMOXICILLIN [Concomitant]
  7. HYDROXYZINE [Concomitant]
  8. METFORMIN HYDROCHLORIDE [Concomitant]
  9. OXAZEPAM [Concomitant]
  10. ZOLPIDEM TARTRATE [Concomitant]
  11. SODIUM [Concomitant]
  12. GABAPENTIN [Concomitant]

REACTIONS (5)
  - CONVULSION [None]
  - HYPONATRAEMIA [None]
  - INAPPROPRIATE ANTIDIURETIC HORMONE SECRETION [None]
  - RESPIRATORY DISORDER [None]
  - SYNCOPE [None]
